FAERS Safety Report 9359596 (Version 2)
Quarter: 2013Q3

REPORT INFORMATION
  Report Type: Spontaneous
  Country: US (occurrence: US)
  Receive Date: 20130620
  Receipt Date: 20130719
  Transmission Date: 20140515
  Serious: Yes (Other)
  Sender: FDA-Public Use
  Company Number: US-RB-055049-13

PATIENT
  Age: 50 Year
  Sex: Female

DRUGS (5)
  1. SUBOXONE FILM [Suspect]
     Indication: DRUG DEPENDENCE
     Dosage: SUBOXONE FILM
     Route: 060
     Dates: start: 201111, end: 201304
  2. SUBOXONE FILM [Suspect]
     Dosage: SUBOXONE FILM; VARIOUS DOSES WHEN WAS ABLE TO GET THEM
     Route: 060
     Dates: start: 201304, end: 201306
  3. SUBOXONE FILM [Suspect]
     Dosage: SUBOXONE FILM
     Route: 060
     Dates: start: 201306
  4. XANAX [Concomitant]
     Indication: ANXIETY
     Route: 048
     Dates: start: 2009
  5. NICOTINE [Concomitant]
     Indication: PRODUCT USED FOR UNKNOWN INDICATION
     Dosage: A PACK OF CIGARETTES A DAY
     Route: 055

REACTIONS (6)
  - Haematemesis [Recovered/Resolved]
  - Vomiting projectile [Recovered/Resolved]
  - Drug withdrawal syndrome [Recovered/Resolved]
  - Malaise [Recovered/Resolved]
  - Substance abuse [Recovered/Resolved]
  - Vomiting [Recovered/Resolved]
